FAERS Safety Report 24674438 (Version 1)
Quarter: 2024Q4

REPORT INFORMATION
  Report Type: Spontaneous
  Country: JP (occurrence: JP)
  Receive Date: 20241128
  Receipt Date: 20241128
  Transmission Date: 20250114
  Serious: Yes (Hospitalization)
  Sender: ROCHE
  Company Number: JP-CHUGAI-2024040520

PATIENT
  Age: 76 Year
  Sex: Female

DRUGS (1)
  1. AVASTIN [Suspect]
     Active Substance: BEVACIZUMAB
     Indication: Colon cancer
     Dosage: UNK
     Route: 042

REACTIONS (3)
  - Staphylococcal infection [Unknown]
  - Paranasal sinus necrosis [Unknown]
  - Sinusitis bacterial [Unknown]
